FAERS Safety Report 7530864-4 (Version None)
Quarter: 2011Q2

REPORT INFORMATION
  Report Type: 
  Country: None (occurrence: None)
  Receive Date: 20110608
  Receipt Date: 20110526
  Transmission Date: 20111010
  Serious: Yes (Death)
  Sender: FDA-Public Use
  Company Number: FR-BIOGENIDEC-2010BI006198

PATIENT
  Age: 37 Year
  Sex: Female

DRUGS (2)
  1. INFLUENZA H1N1 VACCINE [Concomitant]
     Dates: start: 20091101, end: 20091101
  2. TYSABRI [Suspect]
     Indication: RELAPSING-REMITTING MULTIPLE SCLEROSIS
     Route: 042
     Dates: start: 20080601, end: 20100210

REACTIONS (7)
  - PYELONEPHRITIS [None]
  - ACTINOMYCOSIS [None]
  - ACUTE HAEMORRHAGIC LEUKOENCEPHALITIS [None]
  - PNEUMONIA MYCOPLASMAL [None]
  - BRAIN DEATH [None]
  - LARYNGITIS [None]
  - BRONCHITIS [None]
